FAERS Safety Report 18564567 (Version 23)
Quarter: 2022Q1

REPORT INFORMATION
  Report Type: Report from Study
  Country: US (occurrence: US)
  Receive Date: 20201201
  Receipt Date: 20220331
  Transmission Date: 20220423
  Serious: Yes (Hospitalization, Other)
  Sender: FDA-Public Use
  Company Number: US-SHIRE-US202000158

PATIENT
  Age: 61 Year
  Sex: Female

DRUGS (3)
  1. HUMAN IMMUNOGLOBULIN G [Suspect]
     Active Substance: HUMAN IMMUNOGLOBULIN G
     Indication: Immunodeficiency common variable
     Dosage: UNK, Q2WEEKS
     Route: 042
  2. HUMAN IMMUNOGLOBULIN G [Suspect]
     Active Substance: HUMAN IMMUNOGLOBULIN G
     Indication: Primary immunodeficiency syndrome
     Dosage: UNK, 2/MONTH
     Route: 065
  3. COVID-19 VACCINE NOS [Suspect]
     Active Substance: COVID-19 VACCINE NOS
     Indication: COVID-19 immunisation
     Dosage: UNK
     Route: 065

REACTIONS (46)
  - Staphylococcal infection [Unknown]
  - Septic arthritis staphylococcal [Unknown]
  - Endocarditis staphylococcal [Unknown]
  - Fall [Unknown]
  - COVID-19 [Not Recovered/Not Resolved]
  - Sinusitis [Unknown]
  - Rash [Unknown]
  - Knee arthroplasty [Unknown]
  - Glaucoma [Unknown]
  - Foot fracture [Recovering/Resolving]
  - Fracture malunion [Unknown]
  - Deafness [Unknown]
  - Pneumonia [Unknown]
  - Device related infection [Unknown]
  - Malaise [Unknown]
  - Pain [Unknown]
  - Joint injury [Unknown]
  - Panic attack [Unknown]
  - Bone disorder [Unknown]
  - Ligament disorder [Unknown]
  - Post procedural infection [Unknown]
  - Incision site pain [Unknown]
  - Nasopharyngitis [Unknown]
  - Rotator cuff syndrome [Unknown]
  - Medial tibial stress syndrome [Unknown]
  - Dysphagia [Unknown]
  - Hiatus hernia [Unknown]
  - Ulcer [Unknown]
  - Gastrooesophageal reflux disease [Unknown]
  - Liver function test decreased [Unknown]
  - COVID-19 immunisation [Unknown]
  - Candida infection [Unknown]
  - Sleep disorder [Unknown]
  - Neuralgia [Unknown]
  - Infection [Recovering/Resolving]
  - Immunoglobulins decreased [Unknown]
  - Wheezing [Unknown]
  - Vomiting [Unknown]
  - Headache [Unknown]
  - Pyrexia [Unknown]
  - Arthralgia [Unknown]
  - Fatigue [Unknown]
  - Influenza like illness [Unknown]
  - Contusion [Unknown]
  - Road traffic accident [Unknown]
  - Nasal ulcer [Unknown]

NARRATIVE: CASE EVENT DATE: 20210901
